FAERS Safety Report 8375930-9 (Version None)
Quarter: 2012Q2

REPORT INFORMATION
  Report Type: 
  Country: None (occurrence: None)
  Receive Date: 20120522
  Receipt Date: 20120517
  Transmission Date: 20120825
  Serious: Yes (Hospitalization)
  Sender: FDA-Public Use
  Company Number: BR-BAYER-2012-049551

PATIENT
  Age: 95 Year
  Sex: Female

DRUGS (1)
  1. CIPROFLOXACIN [Suspect]
     Indication: CYSTITIS
     Dosage: 500 MG, BID

REACTIONS (4)
  - OESOPHAGEAL HAEMORRHAGE [None]
  - MELAENA [None]
  - HAEMATEMESIS [None]
  - EROSIVE OESOPHAGITIS [None]
